FAERS Safety Report 7225131-2 (Version None)
Quarter: 2011Q1

REPORT INFORMATION
  Report Type: 
  Country: None (occurrence: None)
  Receive Date: 20110113
  Receipt Date: 20110104
  Transmission Date: 20110831
  Serious: Yes (Other)
  Sender: FDA-Public Use
  Company Number: A0883507A

PATIENT
  Age: 62 Year
  Sex: Female
  Weight: 61.4 kg

DRUGS (5)
  1. SEREVENT [Suspect]
     Dosage: 1PUFF PER DAY
     Route: 055
  2. LUNESTA [Concomitant]
  3. FLOVENT [Suspect]
     Dosage: 1PUFF PER DAY
     Route: 055
  4. LAMICTAL [Concomitant]
  5. NEXIUM [Concomitant]

REACTIONS (2)
  - TONGUE NEOPLASM [None]
  - STOMATITIS [None]
